FAERS Safety Report 23468199 (Version 2)
Quarter: 2024Q2

REPORT INFORMATION
  Report Type: Report from Study
  Country: US (occurrence: US)
  Receive Date: 20240201
  Receipt Date: 20240407
  Transmission Date: 20240715
  Serious: Yes (Hospitalization)
  Sender: FDA-Public Use
  Company Number: US-ABBVIE-5611967

PATIENT
  Age: 62 Year
  Sex: Male
  Weight: 65 kg

DRUGS (9)
  1. HUMIRA [Suspect]
     Active Substance: ADALIMUMAB
     Indication: Colitis ulcerative
     Route: 058
     Dates: start: 201212, end: 201911
  2. REMERON [Concomitant]
     Active Substance: MIRTAZAPINE
     Indication: Insomnia
     Dosage: TIME INTERVAL: AS NECESSARY
     Route: 048
     Dates: start: 2014
  3. FOLIC ACID [Concomitant]
     Active Substance: FOLIC ACID
     Indication: Vitamin supplementation
     Route: 048
     Dates: start: 201102
  4. TRIAMCINOLONE [Concomitant]
     Active Substance: TRIAMCINOLONE
     Indication: Psoriasis
     Route: 061
     Dates: start: 20220202
  5. TELMISARTAN [Concomitant]
     Active Substance: TELMISARTAN
     Indication: Prophylaxis
     Route: 048
     Dates: start: 20230306
  6. PREDNISONE [Concomitant]
     Active Substance: PREDNISONE
     Indication: Colitis ulcerative
     Route: 048
     Dates: start: 20230530
  7. OLANZAPINE [Concomitant]
     Active Substance: OLANZAPINE
     Indication: Agitation
     Route: 048
     Dates: start: 20230531
  8. OXYCODONE [Concomitant]
     Active Substance: OXYCODONE\OXYCODONE HYDROCHLORIDE
     Indication: Colitis ulcerative
     Dosage: TIME INTERVAL: AS NECESSARY
     Route: 048
     Dates: start: 20230531
  9. DRISDOL [Concomitant]
     Active Substance: ERGOCALCIFEROL
     Indication: Supplementation therapy
     Route: 048
     Dates: start: 20191216

REACTIONS (1)
  - Acute kidney injury [Recovered/Resolved]

NARRATIVE: CASE EVENT DATE: 20231127
